FAERS Safety Report 7734095-4 (Version None)
Quarter: 2011Q3

REPORT INFORMATION
  Report Type: 
  Country: None (occurrence: None)
  Receive Date: 20110907
  Receipt Date: 20110830
  Transmission Date: 20111222
  Serious: Yes (Hospitalization)
  Sender: FDA-Public Use
  Company Number: FR-PFIZER INC-2011196356

PATIENT
  Age: 41 Year
  Sex: Male

DRUGS (18)
  1. CLONAZEPAM [Concomitant]
     Dosage: UNK
  2. FERROUS FUMARATE [Concomitant]
     Dosage: UNK
  3. OFLOXACIN [Suspect]
     Dosage: 600 MG, UNK
     Route: 042
     Dates: start: 20110701
  4. ACETAMINOPHEN [Suspect]
     Dosage: 1 G, UNK
     Route: 042
     Dates: start: 20110701
  5. SPECIAFOLDINE [Concomitant]
     Dosage: UNK
  6. PANTOPRAZOLE [Suspect]
     Dosage: 40 MG, DAILY
     Route: 042
     Dates: start: 20110701
  7. PROZAC [Concomitant]
     Dosage: 20 MG, UNK
  8. KETOPROFEN [Concomitant]
     Dosage: UNK
  9. METHYLPREDNISOLONE [Suspect]
     Dosage: 40 MG, UNK
     Route: 042
     Dates: start: 20110701, end: 20110705
  10. SOLUTIONS FOR PARENTERAL NUTRITION [Suspect]
     Dosage: UNK
     Route: 042
     Dates: start: 20110701, end: 20110704
  11. XANAX [Concomitant]
     Dosage: 0.25 MG, UNK
  12. IMURAN [Concomitant]
     Dosage: UNK
  13. AMINO ACIDS [Suspect]
     Dosage: UNK
     Route: 042
     Dates: start: 20110701, end: 20110704
  14. CEFTRIAXONE [Suspect]
     Dosage: 2 G, UNK
     Route: 042
     Dates: start: 20110701
  15. FLUCONAZOLE [Suspect]
     Dosage: 400 MG, UNK
     Route: 042
     Dates: start: 20110701, end: 20110704
  16. CLOZAPINE [Concomitant]
     Dosage: 500 MG, UNK
  17. OMEPRAZOLE [Concomitant]
     Dosage: 20 MG, UNK
  18. CERNEVIT-12 [Suspect]
     Dosage: UNK
     Route: 042
     Dates: start: 20110701, end: 20110704

REACTIONS (3)
  - INJECTION SITE INDURATION [None]
  - THROMBOPHLEBITIS SUPERFICIAL [None]
  - INFLAMMATION [None]
